FAERS Safety Report 8396952-8 (Version None)
Quarter: 2012Q2

REPORT INFORMATION
  Report Type: 
  Country: None (occurrence: None)
  Receive Date: 20120530
  Receipt Date: 20120516
  Transmission Date: 20120825
  Serious: No
  Sender: FDA-Public Use
  Company Number: US-ASTRAZENECA-2012SE31653

PATIENT
  Age: 73 Year
  Sex: Female
  Weight: 63.5 kg

DRUGS (3)
  1. TOPROL-XL [Suspect]
     Indication: HYPERTENSION
     Route: 048
  2. CRESTOR [Suspect]
     Route: 048
  3. CRESTOR [Suspect]
     Indication: BLOOD CHOLESTEROL ABNORMAL
     Route: 048

REACTIONS (2)
  - OFF LABEL USE [None]
  - MYALGIA [None]
